FAERS Safety Report 9904232 (Version 1)
Quarter: 2014Q1

REPORT INFORMATION
  Report Type: Spontaneous
  Country: JP (occurrence: JP)
  Receive Date: 20140218
  Receipt Date: 20140218
  Transmission Date: 20141002
  Serious: Yes (Hospitalization)
  Sender: FDA-Public Use
  Company Number: JP-ROCHE-1347054

PATIENT
  Age: 8 Year
  Sex: 0

DRUGS (1)
  1. TAMIFLU [Suspect]
     Indication: INFLUENZA
     Dosage: UNCERTAIN DOSAGE AND FIVE BATCHES (ONCE ON THE SECOND).?TAMIFLU DRY SYRUP 3%
     Route: 048

REACTIONS (1)
  - Appendicitis [Unknown]
